FAERS Safety Report 4938228-4 (Version None)
Quarter: 2006Q1

REPORT INFORMATION
  Report Type: 
  Country: None (occurrence: None)
  Receive Date: 20060309
  Receipt Date: 20060301
  Transmission Date: 20060701
  Serious: Yes (Other)
  Sender: FDA-Public Use
  Company Number: JP-ROCHE-439003

PATIENT

DRUGS (2)
  1. TAMIFLU [Suspect]
     Indication: INFLUENZA
     Route: 048
     Dates: start: 20060207, end: 20060209
  2. TAMIFLU [Suspect]
     Route: 048
     Dates: start: 20060210, end: 20060211

REACTIONS (1)
  - HYPOTHERMIA [None]
